FAERS Safety Report 9278762 (Version 1)
Quarter: 2013Q2

REPORT INFORMATION
  Report Type: Spontaneous
  Country: US (occurrence: None)
  Receive Date: 20130501
  Receipt Date: 20130501
  Transmission Date: 20140414
  Serious: Yes (Life-Threatening, Hospitalization, Other)
  Sender: FDA-Public Use
  Company Number: 2013P1004891

PATIENT
  Age: 14 Year
  Sex: Male

DRUGS (3)
  1. PHENYTOIN [Suspect]
     Indication: EPILEPSY
     Route: 042
  2. CARBAMAZEPINE [Suspect]
     Indication: EPILEPSY
     Route: 042
  3. CLONAZEPAM [Suspect]
     Indication: EPILEPSY
     Route: 042

REACTIONS (17)
  - Pyrexia [None]
  - Local swelling [None]
  - Lymphadenopathy [None]
  - Oedema [None]
  - Leukopenia [None]
  - Thrombocytopenia [None]
  - Alanine aminotransferase increased [None]
  - Aspartate aminotransferase increased [None]
  - Lymphocytosis [None]
  - Convulsion [None]
  - Hypotension [None]
  - Atrioventricular block complete [None]
  - Rhythm idioventricular [None]
  - Congestive cardiomyopathy [None]
  - Myocarditis [None]
  - Cardiac failure [None]
  - Drug reaction with eosinophilia and systemic symptoms [None]
